FAERS Safety Report 6033814-5 (Version None)
Quarter: 2009Q1

REPORT INFORMATION
  Report Type: 
  Country: None (occurrence: None)
  Receive Date: 20090112
  Receipt Date: 20090106
  Transmission Date: 20090719
  Serious: Yes (Other)
  Sender: FDA-Public Use
  Company Number: GB-JNJFOC-20090101256

PATIENT
  Age: 78 Year
  Sex: Male

DRUGS (4)
  1. SIMVASTATIN [Suspect]
     Indication: DRUG USE FOR UNKNOWN INDICATION
  2. ITRACONAZOLE [Interacting]
     Indication: ASPERGILLOMA
  3. ZOLADEX [Concomitant]
     Indication: PROSTATE CANCER
  4. WARFARIN [Concomitant]
     Indication: PULMONARY EMBOLISM

REACTIONS (4)
  - DRUG INTERACTION [None]
  - MYOPATHY [None]
  - POLYNEUROPATHY [None]
  - UBIQUINONE DECREASED [None]
